FAERS Safety Report 18047430 (Version 1)
Quarter: 2020Q3

REPORT INFORMATION
  Report Type: Report from Study
  Country: None (occurrence: CA)
  Receive Date: 20200721
  Receipt Date: 20200721
  Transmission Date: 20201103
  Serious: Yes (Hospitalization, Other)
  Sender: FDA-Public Use
  Company Number: CA-ABBVIE-20K-028-3488758-00

PATIENT
  Sex: Male

DRUGS (1)
  1. HUMIRA [Suspect]
     Active Substance: ADALIMUMAB
     Indication: CROHN^S DISEASE
     Route: 058
     Dates: start: 20141201

REACTIONS (28)
  - Nausea [Unknown]
  - Polyp [Unknown]
  - Inflammatory bowel disease [Unknown]
  - Scar [Unknown]
  - Pain [Not Recovered/Not Resolved]
  - Abdominal pain [Unknown]
  - Arthralgia [Unknown]
  - Musculoskeletal discomfort [Unknown]
  - Oropharyngeal pain [Unknown]
  - Aphthous ulcer [Unknown]
  - Gastrointestinal disorder [Unknown]
  - Diarrhoea [Not Recovered/Not Resolved]
  - Faecal calprotectin increased [Unknown]
  - Small intestinal anastomosis [Unknown]
  - Colectomy [Unknown]
  - Abdominal distension [Unknown]
  - Asthma [Unknown]
  - Weight increased [Unknown]
  - Constipation [Unknown]
  - Adverse food reaction [Unknown]
  - Small intestinal obstruction [Unknown]
  - Pyrexia [Unknown]
  - Abdominal hernia [Unknown]
  - Vomiting [Unknown]
  - Tongue ulceration [Unknown]
  - Skin papilloma [Unknown]
  - Intestinal resection [Unknown]
  - Fatigue [Unknown]
